FAERS Safety Report 7117353-6 (Version None)
Quarter: 2010Q4

REPORT INFORMATION
  Report Type: 
  Country: None (occurrence: None)
  Receive Date: 20101122
  Receipt Date: 20100223
  Transmission Date: 20110411
  Serious: Yes (Death)
  Sender: FDA-Public Use
  Company Number: VE-PFIZER INC-2010144268

PATIENT
  Sex: Female

DRUGS (2)
  1. LIPITOR [Suspect]
     Indication: HYPERCHOLESTEROLAEMIA
     Dosage: 40 MG, UNK
     Route: 048
  2. LIPITOR [Suspect]
     Indication: HYPERTRIGLYCERIDAEMIA

REACTIONS (1)
  - DEATH [None]
